FAERS Safety Report 6420618-4 (Version None)
Quarter: 2009Q4

REPORT INFORMATION
  Report Type: 
  Country: None (occurrence: None)
  Receive Date: 20091027
  Receipt Date: 20091013
  Transmission Date: 20100525
  Serious: No
  Sender: FDA-Public Use
  Company Number: 900728435-AKO-4981AE

PATIENT

DRUGS (1)
  1. GENTAK [Suspect]
     Dosage: OPHTHALMIC
     Route: 047
     Dates: start: 20091004

REACTIONS (4)
  - EYELID MARGIN CRUSTING [None]
  - EYELID OEDEMA [None]
  - OCULAR HYPERAEMIA [None]
  - SKIN DISCOLOURATION [None]
